FAERS Safety Report 5226296-4 (Version None)
Quarter: 2007Q1

REPORT INFORMATION
  Report Type: 
  Country: None (occurrence: None)
  Receive Date: 20070201
  Receipt Date: 20070117
  Transmission Date: 20070707
  Serious: Yes (Other)
  Sender: FDA-Public Use
  Company Number: US-BRISTOL-MYERS SQUIBB COMPANY-13653415

PATIENT
  Age: 76 Year
  Sex: Male

DRUGS (1)
  1. SINEMET [Suspect]
     Indication: PARKINSON'S DISEASE
     Route: 048

REACTIONS (4)
  - DIZZINESS [None]
  - NAUSEA [None]
  - PHARMACEUTICAL PRODUCT COMPLAINT [None]
  - VOMITING [None]
